FAERS Safety Report 21587309 (Version 1)
Quarter: 2022Q4

REPORT INFORMATION
  Report Type: Spontaneous
  Country: AU (occurrence: AU)
  Receive Date: 20221114
  Receipt Date: 20221114
  Transmission Date: 20230112
  Serious: Yes (Other)
  Sender: FDA-Public Use
  Company Number: AU-BAUSCH-BL-2022-019741

PATIENT
  Age: 55 Year
  Sex: Female

DRUGS (13)
  1. PREDNISOLONE [Suspect]
     Active Substance: PREDNISOLONE
     Indication: Neutrophilic dermatosis
     Route: 065
  2. HYDROXYCHLOROQUINE [Suspect]
     Active Substance: HYDROXYCHLOROQUINE
     Indication: Neutrophilic dermatosis
     Route: 065
  3. BETAMETHASONE DIPROPIONATE [Suspect]
     Active Substance: BETAMETHASONE DIPROPIONATE
     Indication: Neutrophilic dermatosis
     Route: 065
  4. CYCLOSPORINE [Suspect]
     Active Substance: CYCLOSPORINE
     Indication: Neutrophilic dermatosis
     Route: 065
  5. INDOMETHACIN [Suspect]
     Active Substance: INDOMETHACIN
     Indication: Neutrophilic dermatosis
     Route: 065
  6. METHOTREXATE [Suspect]
     Active Substance: METHOTREXATE
     Indication: Neutrophilic dermatosis
     Route: 065
  7. THALIDOMIDE [Suspect]
     Active Substance: THALIDOMIDE
     Indication: Neutrophilic dermatosis
     Route: 065
  8. CYCLOPHOSPHAMIDE [Concomitant]
     Active Substance: CYCLOPHOSPHAMIDE
     Indication: Neutrophilic dermatosis
     Route: 065
  9. ANAKINRA [Concomitant]
     Active Substance: ANAKINRA
     Indication: Neutrophilic dermatosis
     Route: 065
  10. COLCHICINE [Concomitant]
     Active Substance: COLCHICINE
     Indication: Neutrophilic dermatosis
     Route: 065
  11. DAPSONE [Concomitant]
     Active Substance: DAPSONE
     Indication: Neutrophilic dermatosis
     Route: 065
  12. POTASSIUM IODIDE [Concomitant]
     Active Substance: POTASSIUM IODIDE
     Indication: Neutrophilic dermatosis
     Route: 065
  13. CYCLOPHOSPHAMIDE [Concomitant]
     Active Substance: CYCLOPHOSPHAMIDE
     Indication: Neutrophilic dermatosis
     Route: 065

REACTIONS (6)
  - Hip fracture [Unknown]
  - Spinal fracture [Unknown]
  - Depression [Unknown]
  - Insomnia [Unknown]
  - Weight increased [Unknown]
  - Drug ineffective [Unknown]
